FAERS Safety Report 6538768-0 (Version None)
Quarter: 2010Q2

REPORT INFORMATION
  Report Type: 
  Country: None (occurrence: None)
  Receive Date: 20100114
  Receipt Date: 20100114
  Transmission Date: 20101027
  Serious: Yes (Hospitalization)
  Sender: FDA-Public Use
  Company Number: None

PATIENT
  Age: 59 Year
  Sex: Male
  Weight: 112.9457 kg

DRUGS (5)
  1. IXABEPILONE 20MG/M2 (47 MG) CYCLE 1 DAY 1-10/07/09 [Suspect]
     Indication: COLORECTAL CANCER METASTATIC
     Dosage: 20 MG/M2 IV
     Route: 042
     Dates: start: 20091007
  2. IXABEPILONE 20MG/M2 (47 MG) CYCLE 1 DAY 1-10/07/09 [Suspect]
     Indication: COLORECTAL CANCER METASTATIC
     Dosage: 20 MG/M2 IV
     Route: 042
     Dates: start: 20091014
  3. IXABEPILONE 20MG/M2 (47 MG) CYCLE 1 DAY 1-10/07/09 [Suspect]
     Indication: COLORECTAL CANCER METASTATIC
     Dosage: 20 MG/M2 IV
     Route: 042
     Dates: start: 20091021
  4. NORVASC [Concomitant]
  5. SUNITINIB 37.5 MG/DOSE [Suspect]
     Dosage: 37.5 ORAL

REACTIONS (1)
  - UNEVALUABLE EVENT [None]
